FAERS Safety Report 16371666 (Version 1)
Quarter: 2019Q2

REPORT INFORMATION
  Report Type: Spontaneous
  Country: US (occurrence: US)
  Receive Date: 20190424
  Receipt Date: 20190424
  Transmission Date: 20190711
  Serious: Yes (Hospitalization)
  Sender: FDA-Public Use
  Company Number: None

PATIENT
  Age: 16 Year
  Sex: Male
  Weight: 69.2 kg

DRUGS (6)
  1. DEXAMETHASON [Suspect]
     Active Substance: DEXAMETHASONE
     Dates: end: 20190415
  2. ZINECARD [Suspect]
     Active Substance: DEXRAZOXANE HYDROCHLORIDE
     Dates: end: 20190415
  3. VINCRISTINE SULFATE. [Suspect]
     Active Substance: VINCRISTINE SULFATE
     Dates: end: 20190415
  4. GLEEVEC [Suspect]
     Active Substance: IMATINIB MESYLATE
     Dates: end: 20190416
  5. DOXORUBICIN HYDROCHLORIDE. [Suspect]
     Active Substance: DOXORUBICIN HYDROCHLORIDE
     Dates: end: 20190415
  6. ONCASPAR [Suspect]
     Active Substance: PEGASPARGASE
     Dates: end: 20190408

REACTIONS (8)
  - Neutropenia [None]
  - Septic shock [None]
  - Escherichia infection [None]
  - Escherichia sepsis [None]
  - Vascular device infection [None]
  - Staphylococcal sepsis [None]
  - Device related infection [None]
  - Staphylococcal infection [None]

NARRATIVE: CASE EVENT DATE: 20190417
